FAERS Safety Report 6018069-X (Version None)
Quarter: 2008Q4

REPORT INFORMATION
  Report Type: 
  Country: None (occurrence: None)
  Receive Date: 20081223
  Receipt Date: 20081213
  Transmission Date: 20090506
  Serious: Yes (Other)
  Sender: FDA-Public Use
  Company Number: US-PFIZER INC-2008072399

PATIENT
  Sex: Female
  Weight: 72.6 kg

DRUGS (7)
  1. LIPITOR [Suspect]
     Indication: BLOOD CHOLESTEROL INCREASED
  2. DRUG, UNSPECIFIED [Suspect]
     Indication: THYROID DISORDER
     Dates: start: 20080101, end: 20080101
  3. THYROID TAB [Concomitant]
  4. NIFEDIPINE [Concomitant]
  5. LISINOPRIL [Concomitant]
  6. EVISTA [Concomitant]
  7. DRUG, UNSPECIFIED [Concomitant]

REACTIONS (9)
  - BLINDNESS TRANSIENT [None]
  - DYSPNOEA [None]
  - GASTRIC ULCER [None]
  - MIGRAINE [None]
  - OESOPHAGEAL SPASM [None]
  - PALPITATIONS [None]
  - THERAPEUTIC RESPONSE UNEXPECTED WITH DRUG SUBSTITUTION [None]
  - THYROID DISORDER [None]
  - THYROID FUNCTION TEST ABNORMAL [None]
